FAERS Safety Report 9363518 (Version 1)
Quarter: 2013Q2

REPORT INFORMATION
  Report Type: Report from Study
  Country: CA (occurrence: CA)
  Receive Date: 20130624
  Receipt Date: 20130624
  Transmission Date: 20140414
  Serious: Yes (Hospitalization)
  Sender: FDA-Public Use
  Company Number: CA-JNJFOC-20130612385

PATIENT
  Age: 31 Year
  Sex: Male
  Weight: 94.3 kg

DRUGS (4)
  1. REMICADE [Suspect]
     Indication: CROHN^S DISEASE
     Route: 042
     Dates: start: 20120104
  2. TYLENOL [Concomitant]
     Indication: PREMEDICATION
     Route: 065
  3. AERIUS [Concomitant]
     Indication: PREMEDICATION
     Route: 048
  4. SOLU CORTEF [Concomitant]
     Indication: PREMEDICATION
     Route: 042

REACTIONS (1)
  - Pancreatitis relapsing [Recovered/Resolved]
